FAERS Safety Report 9857812 (Version 2)
Quarter: 2014Q2

REPORT INFORMATION
  Report Type: Report from Study
  Country: US (occurrence: US)
  Receive Date: 20140131
  Receipt Date: 20140418
  Transmission Date: 20141212
  Serious: Yes (Death, Hospitalization)
  Sender: FDA-Public Use
  Company Number: US-BRISTOL-MYERS SQUIBB COMPANY-20090965

PATIENT
  Age: 73 Year
  Sex: Female

DRUGS (3)
  1. ORENCIA [Suspect]
     Indication: RHEUMATOID ARTHRITIS
     Route: 058
     Dates: start: 20100323, end: 20131226
  2. ARAVA [Suspect]
     Route: 048
     Dates: start: 200709, end: 201401
  3. METHOTREXATE [Suspect]
     Dates: start: 200412, end: 201401

REACTIONS (1)
  - Lymphoma [Fatal]
